FAERS Safety Report 9046180 (Version 1)
Quarter: 2013Q1

REPORT INFORMATION
  Report Type: Spontaneous
  Country: US (occurrence: US)
  Receive Date: 20130201
  Receipt Date: 20130201
  Transmission Date: 20140127
  Serious: Yes (Death, Other)
  Sender: FDA-Public Use
  Company Number: US-RANBAXY-2013US-64704

PATIENT
  Sex: Female

DRUGS (1)
  1. LORATADINE [Suspect]
     Indication: SKIN DISORDER
     Dosage: 10 MG, SINGLE
     Route: 065
     Dates: start: 20130118

REACTIONS (4)
  - Eye swelling [Unknown]
  - Swelling face [Unknown]
  - Local swelling [Unknown]
  - Nausea [Unknown]
